FAERS Safety Report 8492269 (Version 4)
Quarter: 2013Q3

REPORT INFORMATION
  Report Type: Spontaneous
  Country: US (occurrence: US)
  Receive Date: 20120403
  Receipt Date: 20130828
  Transmission Date: 20140515
  Serious: Yes (Other)
  Sender: FDA-Public Use
  Company Number: US-GLAXOSMITHKLINE-A0837237A

PATIENT
  Age: 40 Year
  Sex: Female

DRUGS (3)
  1. VENTOLIN [Suspect]
     Indication: ASTHMA
     Dosage: 2PUFF THREE TIMES PER DAY
     Route: 055
     Dates: start: 2005
  2. ADVAIR [Suspect]
     Indication: PRODUCT USED FOR UNKNOWN INDICATION
     Route: 055
     Dates: start: 20091222
  3. NEBULIZER [Concomitant]

REACTIONS (9)
  - Blindness [Not Recovered/Not Resolved]
  - Adverse drug reaction [Unknown]
  - Bacterial infection [Unknown]
  - Memory impairment [Unknown]
  - Oral disorder [Unknown]
  - Nasal congestion [Unknown]
  - Product quality issue [Unknown]
  - Asthma [Unknown]
  - Inhalation therapy [Unknown]
